FAERS Safety Report 5886238-5 (Version None)
Quarter: 2008Q3

REPORT INFORMATION
  Report Type: 
  Country: None (occurrence: None)
  Receive Date: 20080917
  Receipt Date: 20080908
  Transmission Date: 20090109
  Serious: Yes (Hospitalization)
  Sender: FDA-Public Use
  Company Number: DE-ASTRAZENECA-2008AC02474

PATIENT
  Age: 54 Year
  Sex: Female
  Weight: 104 kg

DRUGS (1)
  1. TAMOXIFEN CITRATE [Suspect]
     Indication: BREAST CANCER
     Route: 048
     Dates: start: 20070130

REACTIONS (9)
  - ARTHRALGIA [None]
  - BONE PAIN [None]
  - ENDOMETRIOSIS [None]
  - FLUSHING [None]
  - HAEMORRHAGIC OVARIAN CYST [None]
  - NAUSEA [None]
  - OVARIAN CYST [None]
  - SALPINGITIS [None]
  - UTERINE LEIOMYOMA [None]
